FAERS Safety Report 7468360-5 (Version None)
Quarter: 2011Q2

REPORT INFORMATION
  Report Type: 
  Country: None (occurrence: None)
  Receive Date: 20110509
  Receipt Date: 20110426
  Transmission Date: 20111010
  Serious: Yes (Hospitalization)
  Sender: FDA-Public Use
  Company Number: US-JNJFOC-20110411850

PATIENT
  Sex: Female

DRUGS (7)
  1. REMICADE [Suspect]
     Route: 064
  2. REMICADE [Suspect]
     Route: 064
  3. REMICADE [Suspect]
     Route: 064
  4. REMICADE [Suspect]
     Indication: DRUG EXPOSURE DURING PREGNANCY
     Route: 064
  5. REMICADE [Suspect]
     Route: 064
  6. REMICADE [Suspect]
     Route: 064
  7. REMICADE [Suspect]
     Route: 064

REACTIONS (4)
  - SMALL FOR DATES BABY [None]
  - CELLULITIS STAPHYLOCOCCAL [None]
  - PREMATURE BABY [None]
  - JAUNDICE NEONATAL [None]
